FAERS Safety Report 17647845 (Version 1)
Quarter: 2020Q2

REPORT INFORMATION
  Report Type: Spontaneous
  Country: US (occurrence: US)
  Receive Date: 20200408
  Receipt Date: 20200408
  Transmission Date: 20200713
  Serious: Yes (Other)
  Sender: FDA-Public Use
  Company Number: NVSC2020US094566

PATIENT
  Age: 60 Year
  Sex: Male

DRUGS (1)
  1. OMEPRAZOLE SANDOZ [Suspect]
     Active Substance: OMEPRAZOLE
     Indication: PRODUCT USED FOR UNKNOWN INDICATION
     Dosage: UNK UNK, QD
     Route: 048

REACTIONS (4)
  - Pruritus [Unknown]
  - Feeling abnormal [Unknown]
  - Haemorrhage [Unknown]
  - Drug hypersensitivity [Unknown]
